FAERS Safety Report 7641330-X (Version None)
Quarter: 2011Q3

REPORT INFORMATION
  Report Type: 
  Country: None (occurrence: None)
  Receive Date: 20110728
  Receipt Date: 20110726
  Transmission Date: 20111222
  Serious: Yes (Hospitalization, Other)
  Sender: FDA-Public Use
  Company Number: US-PFIZER INC-2011170121

PATIENT
  Sex: Male

DRUGS (3)
  1. NEXIUM [Concomitant]
     Dosage: UNK
  2. LYRICA [Suspect]
     Indication: BONE PAIN
     Dosage: 75 MG, 1X/DAY
     Route: 048
     Dates: start: 20090520, end: 20090520
  3. PROBENECID [Concomitant]
     Dosage: UNK

REACTIONS (7)
  - GAIT DISTURBANCE [None]
  - JOINT INJURY [None]
  - EYE INJURY [None]
  - LOSS OF CONSCIOUSNESS [None]
  - HYPERSOMNIA [None]
  - FALL [None]
  - LIMB INJURY [None]
